FAERS Safety Report 9380658 (Version 1)
Quarter: 2013Q3

REPORT INFORMATION
  Report Type: Spontaneous
  Country: US (occurrence: US)
  Receive Date: 20130702
  Receipt Date: 20130702
  Transmission Date: 20140515
  Serious: Yes (Other)
  Sender: FDA-Public Use
  Company Number: US-ELI_LILLY_AND_COMPANY-US201306007791

PATIENT
  Age: 68 Year
  Sex: Male

DRUGS (2)
  1. EFFIENT [Suspect]
     Dosage: 10 MG, UNKNOWN
  2. EFFIENT [Suspect]
     Dosage: 5 MG, UNKNOWN

REACTIONS (2)
  - Stent embolisation [Recovered/Resolved]
  - Haemorrhage [Recovered/Resolved]
